FAERS Safety Report 8586118-0 (Version None)
Quarter: 2012Q3

REPORT INFORMATION
  Report Type: 
  Country: None (occurrence: None)
  Receive Date: 20120810
  Receipt Date: 20120806
  Transmission Date: 20120928
  Serious: Yes (Hospitalization)
  Sender: FDA-Public Use
  Company Number: BE-PFIZER INC-2012192083

PATIENT
  Sex: Male
  Weight: 102 kg

DRUGS (9)
  1. GENOTROPIN [Suspect]
     Dosage: 0.3 MG, 7/WK
     Route: 058
     Dates: start: 20071017
  2. DEPAKENE [Concomitant]
     Indication: CONVULSION
  3. PREGNYL [Concomitant]
     Indication: BLOOD LUTEINISING HORMONE DECREASED
     Dosage: UNK
     Dates: start: 20050216
  4. HYDROCORTISONE [Concomitant]
     Indication: BLOOD CORTICOTROPHIN DECREASED
     Dosage: UNK
     Dates: start: 20000815
  5. DEPAKENE [Concomitant]
  6. ELTHYRONE [Concomitant]
     Indication: BLOOD THYROID STIMULATING HORMONE DECREASED
     Dosage: UNK
     Dates: start: 20040915
  7. PREGNYL [Concomitant]
     Indication: BLOOD FOLLICLE STIMULATING HORMONE DECREASED
  8. MINIRIN [Concomitant]
     Indication: BLOOD ANTIDIURETIC HORMONE DECREASED
     Dosage: UNK
     Dates: start: 20050510
  9. DEPAKENE [Concomitant]
     Indication: EPILEPSY
     Dosage: UNK
     Dates: start: 20050510

REACTIONS (1)
  - EYE DISORDER [None]
